FAERS Safety Report 18050656 (Version 4)
Quarter: 2021Q2

REPORT INFORMATION
  Report Type: Spontaneous
  Country: US (occurrence: US)
  Receive Date: 20200721
  Receipt Date: 20210624
  Transmission Date: 20210717
  Serious: Yes (Other)
  Sender: FDA-Public Use
  Company Number: US-GILEAD-2020-0481690

PATIENT
  Age: 52 Year
  Sex: Male
  Weight: 68 kg

DRUGS (10)
  1. ATRIPLA [Suspect]
     Active Substance: EFAVIRENZ\EMTRICITABINE\TENOFOVIR DISOPROXIL FUMARATE
     Indication: HIV INFECTION
     Dosage: UNK
     Route: 048
     Dates: start: 201711, end: 201712
  2. INTELENCE [Concomitant]
     Active Substance: ETRAVIRINE
  3. NORVIR [Concomitant]
     Active Substance: RITONAVIR
  4. TRUVADA [Suspect]
     Active Substance: EMTRICITABINE\TENOFOVIR DISOPROXIL FUMARATE
     Indication: HIV INFECTION
     Dosage: UNK
     Route: 048
     Dates: start: 20041015, end: 20110101
  5. ISENTRESS [Concomitant]
     Active Substance: RALTEGRAVIR POTASSIUM
  6. TIVICAY [Concomitant]
     Active Substance: DOLUTEGRAVIR SODIUM
  7. PREZISTA [Concomitant]
     Active Substance: DARUNAVIR ETHANOLATE
  8. FUZEON [Concomitant]
     Active Substance: ENFUVIRTIDE
  9. KALETRA [Concomitant]
     Active Substance: LOPINAVIR\RITONAVIR
  10. ATAZANAVIR. [Concomitant]
     Active Substance: ATAZANAVIR

REACTIONS (5)
  - Bone disorder [Unknown]
  - Osteonecrosis [Unknown]
  - Osteoporosis [Unknown]
  - Hip fracture [Unknown]
  - Bone density decreased [Not Recovered/Not Resolved]

NARRATIVE: CASE EVENT DATE: 20120125
